FAERS Safety Report 8252017-7 (Version None)
Quarter: 2012Q2

REPORT INFORMATION
  Report Type: 
  Country: None (occurrence: None)
  Receive Date: 20120402
  Receipt Date: 20110322
  Transmission Date: 20120825
  Serious: No
  Sender: FDA-Public Use
  Company Number: US-ABBOTT-11P-163-0804332-00

PATIENT
  Sex: Male
  Weight: 90.909 kg

DRUGS (2)
  1. ASCORBIC ACID AND ERGOCALCIFEROL AND FOLIC ACID AND NICOTINAMIDE AND P [Concomitant]
     Indication: SUPPLEMENTATION THERAPY
     Dosage: DAILY DOSE:  UNKNOWN
     Route: 065
  2. TESTOSTERONE [Suspect]
     Indication: BLOOD TESTOSTERONE DECREASED
     Dosage: DAILY DOSE: 5 GRAM(S)
     Route: 062
     Dates: start: 20110115

REACTIONS (3)
  - PLATELET COUNT DECREASED [None]
  - ALOPECIA [None]
  - WEIGHT INCREASED [None]
